FAERS Safety Report 24351353 (Version 1)
Quarter: 2024Q3

REPORT INFORMATION
  Report Type: Report from Study
  Country: US (occurrence: US)
  Receive Date: 20240923
  Receipt Date: 20240923
  Transmission Date: 20241016
  Serious: No
  Sender: ROCHE
  Company Number: US-ROCHE-2276829

PATIENT
  Age: 67 Year
  Sex: Male
  Weight: 98.34 kg

DRUGS (3)
  1. HERCEPTIN [Suspect]
     Active Substance: TRASTUZUMAB
     Indication: Head and neck cancer
     Dosage: FORM STRENGTH: 150MG X 4 VIALS, 6MG/KG IS EQUAL TO 596MG?DATE OF SERVICE: 14/SEP/2023
     Route: 042
     Dates: start: 20190226
  2. HERCEPTIN [Suspect]
     Active Substance: TRASTUZUMAB
     Indication: Malignant neoplasm of lacrimal gland
     Route: 042
     Dates: start: 20211019
  3. HERCEPTIN [Suspect]
     Active Substance: TRASTUZUMAB
     Indication: Malignant neoplasm of lacrimal duct
     Dosage: 588 MG/ 28 ML
     Route: 042

REACTIONS (2)
  - Off label use [Unknown]
  - No adverse event [Unknown]
